FAERS Safety Report 5147568-8 (Version None)
Quarter: 2006Q4

REPORT INFORMATION
  Report Type: 
  Country: None (occurrence: None)
  Receive Date: 20061106
  Receipt Date: 20061024
  Transmission Date: 20070319
  Serious: Yes (Other)
  Sender: FDA-Public Use
  Company Number: 2006130109

PATIENT
  Sex: Female

DRUGS (5)
  1. NORVASC [Suspect]
  2. COZAAR [Suspect]
  3. DEMADEX [Suspect]
  4. TOPROL-XL [Suspect]
  5. COUMADIN [Suspect]

REACTIONS (2)
  - CEREBROVASCULAR ACCIDENT [None]
  - MYOCARDIAL INFARCTION [None]
